FAERS Safety Report 16822770 (Version 1)
Quarter: 2019Q3

REPORT INFORMATION
  Report Type: Spontaneous
  Country: US (occurrence: US)
  Receive Date: 20190918
  Receipt Date: 20190918
  Transmission Date: 20191005
  Serious: Yes (Other)
  Sender: FDA-Public Use
  Company Number: US-PFIZER INC-2019386210

PATIENT
  Sex: Male

DRUGS (3)
  1. TACROLIMUS. [Suspect]
     Active Substance: TACROLIMUS
     Dosage: 0.5 MG, DAILY (DECREASED FROM 0.5 MG TWICE A DAY TO 0.5 MG DAILY)
  2. TACROLIMUS. [Suspect]
     Active Substance: TACROLIMUS
     Dosage: 0.5 MG, 2X/DAY (DECREASED FROM 0.5 MG TWICE A DAY TO 0.5 MG DAILY)
  3. TACROLIMUS. [Suspect]
     Active Substance: TACROLIMUS
     Indication: IMMUNOSUPPRESSANT DRUG THERAPY
     Dosage: UNK (LOW-DOSE)

REACTIONS (2)
  - Hepatitis C [Unknown]
  - Ascites [Unknown]
